FAERS Safety Report 5047011-3 (Version None)
Quarter: 2006Q2

REPORT INFORMATION
  Report Type: 
  Country: None (occurrence: None)
  Receive Date: 20060630
  Receipt Date: 20060619
  Transmission Date: 20061013
  Serious: Yes (Other)
  Sender: FDA-Public Use
  Company Number: 2006077874

PATIENT
  Age: 39 Year
  Sex: Female

DRUGS (1)
  1. DIFLUCAN [Suspect]
     Indication: VAGINAL CANDIDIASIS
     Dosage: 150 MG

REACTIONS (2)
  - ABORTION SPONTANEOUS [None]
  - DRUG EXPOSURE DURING PREGNANCY [None]
